FAERS Safety Report 5190514-1 (Version None)
Quarter: 2006Q4

REPORT INFORMATION
  Report Type: 
  Country: None (occurrence: None)
  Receive Date: 20061222
  Receipt Date: 20061220
  Transmission Date: 20070319
  Serious: Yes (Hospitalization)
  Sender: FDA-Public Use
  Company Number: FR-GLAXOSMITHKLINE-B0451328A

PATIENT
  Age: 76 Year
  Sex: Female

DRUGS (5)
  1. DEROXAT [Suspect]
     Indication: DEPRESSION
     Dosage: 20MG PER DAY
     Route: 048
  2. LOVENOX [Suspect]
     Dosage: .4ML PER DAY
     Route: 058
     Dates: start: 20061109, end: 20061206
  3. NEO-MERCAZOLE TAB [Suspect]
     Dosage: 40MG PER DAY
     Route: 048
     Dates: start: 20061107, end: 20061111
  4. AVLOCARDYL [Suspect]
     Dosage: 40MG PER DAY
     Route: 048
     Dates: start: 20061107
  5. DOGMATIL [Concomitant]
     Route: 065
     Dates: end: 20061121

REACTIONS (3)
  - HYPERTHYROIDISM [None]
  - NEUTROPENIA [None]
  - THYROID DISORDER [None]
